FAERS Safety Report 17284116 (Version 7)
Quarter: 2021Q1

REPORT INFORMATION
  Report Type: Report from Study
  Country: US (occurrence: US)
  Receive Date: 20200117
  Receipt Date: 20210316
  Transmission Date: 20210419
  Serious: Yes (Other)
  Sender: FDA-Public Use
  Company Number: NVSC2020US006562

PATIENT
  Age: 62 Year
  Sex: Female

DRUGS (1)
  1. ENTRESTO [Suspect]
     Active Substance: SACUBITRIL\VALSARTAN
     Indication: PRODUCT USED FOR UNKNOWN INDICATION
     Dosage: 1 DF (24MG SACUBITRIL /26MGVALSARTAN), BID
     Route: 048
     Dates: start: 201909

REACTIONS (14)
  - Memory impairment [Not Recovered/Not Resolved]
  - Dyspnoea exertional [Not Recovered/Not Resolved]
  - Collateral circulation [Unknown]
  - Fatigue [Unknown]
  - Weight increased [Not Recovered/Not Resolved]
  - Depressed mood [Unknown]
  - Product dose omission issue [Unknown]
  - Oxygen saturation decreased [Unknown]
  - Cardiac failure [Unknown]
  - Atrial fibrillation [Not Recovered/Not Resolved]
  - Hypotension [Not Recovered/Not Resolved]
  - Myocardial infarction [Not Recovered/Not Resolved]
  - Dyspnoea [Unknown]
  - Wheezing [Unknown]

NARRATIVE: CASE EVENT DATE: 2019
